FAERS Safety Report 8983119 (Version 1)
Quarter: 2012Q4

REPORT INFORMATION
  Report Type: 
  Country: BE (occurrence: BE)
  Receive Date: 20121223
  Receipt Date: 20121223
  Transmission Date: 20130627
  Serious: Yes (Other)
  Sender: FDA-Public Use
  Company Number: BE-AMGEN-BELSP2012068453

PATIENT
  Sex: Male

DRUGS (1)
  1. NEUPOGEN [Suspect]
     Indication: HAEMATOPOIETIC STEM CELL MOBILISATION
     Dosage: UNK

REACTIONS (1)
  - Neoplasm malignant [Unknown]
